FAERS Safety Report 9518088 (Version 2)
Quarter: 2014Q1

REPORT INFORMATION
  Report Type: Spontaneous
  Country: US (occurrence: None)
  Receive Date: 20130305
  Receipt Date: 20140306
  Transmission Date: 20141002
  Serious: Yes (Hospitalization, Other)
  Sender: FDA-Public Use
  Company Number: 163-21880-12082539

PATIENT
  Age: 75 Year
  Sex: Female
  Weight: 63.5 kg

DRUGS (20)
  1. REVLIMID [Suspect]
     Indication: AMYLOIDOSIS
     Dosage: 25 MG, 14 IN 21 D, PO
     Route: 048
     Dates: start: 20120719
  2. CALRATE WITH VIAMIN D (LEVKOVIT CA) [Concomitant]
  3. DEXAMETHASONE [Concomitant]
  4. PANTOPRAZOLE [Concomitant]
  5. FUROSEMIDE [Concomitant]
  6. GABAPENTIN [Concomitant]
  7. SULFAMETHOXAZOLE-TMP DS (BACTRIM) [Concomitant]
  8. ATENOLOL [Concomitant]
  9. SIMVASTATIN [Concomitant]
  10. HYDROCHLOROTHIAZIDE [Concomitant]
  11. DOCUSATE CAL (DOCUSATE CALCIUM) [Concomitant]
  12. VELCADE (BORTEZOMIB) [Concomitant]
  13. ZOMETA (ZOLEDRONIC ACID) [Concomitant]
  14. CENTRUM SILVER [Concomitant]
  15. ACYCLOVIR (ACICLOVIR) (ACICLOVIR) [Concomitant]
  16. AMITRIPTYLINE HCL (AMITRIPTYLINE HYDROCHLORIDE) [Concomitant]
  17. HYDROCODONE W/ACETAMINOPHEN (VICODIN) [Concomitant]
  18. ZYRTEC (CETIRIZINE HYDROCHLORIDE) [Concomitant]
  19. MAGNESIUM OXIDE [Concomitant]
  20. ASPIRIN (ACETYLSALICYLIC ACID) [Concomitant]

REACTIONS (10)
  - Hypotension [None]
  - Fall [None]
  - Dizziness [None]
  - Rash [None]
  - Pruritus [None]
  - Neuralgia [None]
  - Burning sensation [None]
  - Paraesthesia [None]
  - Pain in extremity [None]
  - Muscle spasms [None]
